FAERS Safety Report 7985314-0 (Version None)
Quarter: 2011Q4

REPORT INFORMATION
  Report Type: 
  Country: None (occurrence: None)
  Receive Date: 20111216
  Receipt Date: 20111206
  Transmission Date: 20120403
  Serious: Yes (Other)
  Sender: FDA-Public Use
  Company Number: FR-TEVA-309154ISR

PATIENT
  Age: 48 Year
  Sex: Female

DRUGS (2)
  1. TAMOXIFEN [Suspect]
     Dates: start: 20070601
  2. DULOXETINE HYDROCHLORIDE [Interacting]
     Dates: start: 20070901

REACTIONS (4)
  - DRUG INTERACTION [None]
  - HOT FLUSH [None]
  - BREAST CANCER RECURRENT [None]
  - DRUG EFFECT DECREASED [None]
